FAERS Safety Report 8350662-1 (Version None)
Quarter: 2012Q2

REPORT INFORMATION
  Report Type: 
  Country: None (occurrence: None)
  Receive Date: 20120510
  Receipt Date: 20120509
  Transmission Date: 20120825
  Serious: Yes (Hospitalization, Other)
  Sender: FDA-Public Use
  Company Number: DE-ABBOTT-09P-062-0573297-00

PATIENT
  Sex: Male
  Weight: 125 kg

DRUGS (6)
  1. HEART DRUG [Concomitant]
     Indication: PRODUCT USED FOR UNKNOWN INDICATION
  2. HUMIRA [Suspect]
     Indication: PSORIATIC ARTHROPATHY
     Dosage: 40 MG MORE OFTEN THAN EVERY 2 WEEKS
     Route: 058
     Dates: start: 20071101, end: 20110329
  3. ANALGETIC DRUG [Concomitant]
     Indication: PSORIATIC ARTHROPATHY
  4. ARCOXIA [Concomitant]
     Indication: PSORIATIC ARTHROPATHY
     Dosage: 90 MG OD
     Route: 048
     Dates: start: 20060101
  5. HUMIRA [Suspect]
     Dates: start: 20110701
  6. DIURETIC [Concomitant]
     Indication: POLYURIA

REACTIONS (6)
  - KNEE OPERATION [None]
  - PSORIATIC ARTHROPATHY [None]
  - LIMB INJURY [None]
  - ARTHRITIS [None]
  - DEVICE DISLOCATION [None]
  - KNEE ARTHROPLASTY [None]
